FAERS Safety Report 16299125 (Version 4)
Quarter: 2020Q2

REPORT INFORMATION
  Report Type: Spontaneous
  Country: DE (occurrence: DE)
  Receive Date: 20190510
  Receipt Date: 20200621
  Transmission Date: 20200713
  Serious: Yes (Life-Threatening, Hospitalization, Disabling, Other)
  Sender: FDA-Public Use
  Company Number: PHHY2019DE104887

PATIENT
  Age: 69 Year
  Sex: Male
  Weight: 90 kg

DRUGS (58)
  1. DEXAMETHASONE. [Suspect]
     Active Substance: DEXAMETHASONE
     Indication: BRAIN OEDEMA
     Dosage: 1 MG, QD
     Route: 031
     Dates: start: 20170929
  2. DEXAMETHASONE. [Suspect]
     Active Substance: DEXAMETHASONE
     Indication: METASTASES TO CENTRAL NERVOUS SYSTEM
     Dosage: 4 MG, QD
     Route: 048
     Dates: start: 20180124, end: 20180220
  3. DEXAMETHASONE. [Suspect]
     Active Substance: DEXAMETHASONE
     Dosage: 1 MG, QD
     Route: 048
     Dates: start: 20180807, end: 20180820
  4. COBIMETINIB. [Suspect]
     Active Substance: COBIMETINIB
     Indication: METASTATIC MALIGNANT MELANOMA
     Dosage: DOSE 20 MG X 3 (60 MG)
     Route: 048
     Dates: start: 20170823, end: 20170828
  5. VEMURAFENIB. [Suspect]
     Active Substance: VEMURAFENIB
     Dosage: 720 MG
     Route: 048
     Dates: start: 20170907, end: 20180619
  6. VEMURAFENIB. [Suspect]
     Active Substance: VEMURAFENIB
     Dosage: 720 MG
     Route: 048
     Dates: start: 20170904, end: 20170906
  7. VOMEX A [Concomitant]
     Active Substance: DIMENHYDRINATE
     Indication: PROPHYLAXIS OF NAUSEA AND VOMITING
     Dosage: 150 MG, QD IN CASE OF NAUSEA MAX. 3 TIMES PER DAY
     Route: 065
     Dates: start: 20180620
  8. RAMIPRIL. [Concomitant]
     Active Substance: RAMIPRIL
     Indication: HYPERTENSION
  9. SIMVASTATIN. [Concomitant]
     Active Substance: SIMVASTATIN
     Indication: VASCULAR GRAFT
     Dosage: 30 MG, QD
     Route: 048
     Dates: start: 20150501
  10. ACETYLSALICYLIC ACID [Concomitant]
     Active Substance: ASPIRIN
     Indication: HYPERTENSION
     Dosage: UNK
     Route: 065
  11. VEMURAFENIB. [Suspect]
     Active Substance: VEMURAFENIB
     Dosage: 1920 MG, QD
     Route: 048
     Dates: start: 20180823
  12. VEMURAFENIB. [Suspect]
     Active Substance: VEMURAFENIB
     Dosage: 960 MG
     Route: 048
     Dates: start: 20180823
  13. VEMURAFENIB. [Suspect]
     Active Substance: VEMURAFENIB
     Dosage: 480 MG
     Route: 048
     Dates: start: 20170827, end: 20170828
  14. DEXAMETHASONE. [Suspect]
     Active Substance: DEXAMETHASONE
     Indication: PROCEDURAL NAUSEA
     Dosage: 12 MG, QD
     Route: 048
     Dates: start: 20170828, end: 20170831
  15. DEXAMETHASONE. [Suspect]
     Active Substance: DEXAMETHASONE
     Dosage: 2 MG, QD
     Route: 048
     Dates: start: 20180409, end: 20180515
  16. COBIMETINIB. [Suspect]
     Active Substance: COBIMETINIB
     Dosage: 40 MG
     Route: 048
     Dates: start: 20180424, end: 20180514
  17. VEMURAFENIB. [Suspect]
     Active Substance: VEMURAFENIB
     Indication: METASTATIC MALIGNANT MELANOMA
     Dosage: 960 MG, QD
     Route: 048
     Dates: start: 20170827, end: 20170828
  18. VEMURAFENIB. [Suspect]
     Active Substance: VEMURAFENIB
     Dosage: DOSE 240 MG X 4 (960 MG)
     Route: 048
     Dates: start: 20170823, end: 20170826
  19. METOPROLOL. [Concomitant]
     Active Substance: METOPROLOL
     Indication: VASCULAR GRAFT
     Dosage: 95 MG, Q12H
     Route: 048
     Dates: start: 20140501
  20. METOPROLOL. [Concomitant]
     Active Substance: METOPROLOL
     Indication: HYPERTENSION
  21. FERRO SANOL [Concomitant]
     Active Substance: FERROUS GLYCINE SULFATE
     Indication: PROPHYLAXIS
     Dosage: PROPHYLAXIS OF IRON
     Route: 048
     Dates: start: 20181022, end: 20181203
  22. LEVETIRACETAM. [Concomitant]
     Active Substance: LEVETIRACETAM
     Indication: METASTASES TO CENTRAL NERVOUS SYSTEM
  23. UNACID [Concomitant]
     Indication: PRODUCT USED FOR UNKNOWN INDICATION
     Dosage: UNK
     Route: 065
     Dates: start: 20180101
  24. DEXAMETHASONE. [Suspect]
     Active Substance: DEXAMETHASONE
     Indication: VISION BLURRED
     Dosage: 8 MG, QD
     Route: 048
     Dates: start: 20170901, end: 20170903
  25. DEXAMETHASONE. [Suspect]
     Active Substance: DEXAMETHASONE
     Indication: PROCEDURAL HEADACHE
     Dosage: 5 MG, QD
     Route: 031
     Dates: start: 20170929
  26. DEXAMETHASONE. [Suspect]
     Active Substance: DEXAMETHASONE
     Dosage: 1 MG, QD
     Route: 048
     Dates: start: 20180516, end: 20180603
  27. DEXAMETHASONE. [Suspect]
     Active Substance: DEXAMETHASONE
     Dosage: 1 MG, QD
     Route: 048
     Dates: start: 20180604, end: 20180606
  28. MONO EMBOLEX [Concomitant]
     Active Substance: CERTOPARIN SODIUM
     Indication: PROPHYLAXIS
     Dosage: INDICATION: EMBOLISM PROPHYLAXIS BECAUSE OF CORONARY HEART DISEASE
     Route: 058
     Dates: start: 20170131
  29. FOLVERLAN [Concomitant]
     Active Substance: FOLIC ACID
     Indication: PROPHYLAXIS
     Dosage: 1 OT, QD (PROPHYLAXIS OF FOLATE SHORTAGE)
     Route: 048
     Dates: start: 20181022
  30. VIMPAT [Concomitant]
     Active Substance: LACOSAMIDE
     Dosage: 100 MG
     Route: 048
     Dates: start: 20190426
  31. DEXAMETHASONE. [Suspect]
     Active Substance: DEXAMETHASONE
     Dosage: 3 MG, QD
     Route: 048
     Dates: start: 20180612, end: 20180709
  32. VEMURAFENIB. [Suspect]
     Active Substance: VEMURAFENIB
     Indication: METASTATIC MALIGNANT MELANOMA
     Dosage: DOSE 240 MG X 4 (960 MG)
     Route: 048
     Dates: start: 20170823, end: 20170826
  33. VEMURAFENIB. [Suspect]
     Active Substance: VEMURAFENIB
     Dosage: 1440 MG, QD
     Route: 048
     Dates: start: 20170907, end: 20180619
  34. ASPIRIN. [Concomitant]
     Active Substance: ASPIRIN
     Indication: HYPERTENSION
     Dosage: 100 MG, QD
     Route: 048
     Dates: start: 20140501
  35. SIMVASTATIN. [Concomitant]
     Active Substance: SIMVASTATIN
     Indication: HYPERTENSION
  36. PANTOPRAZOLE [Concomitant]
     Active Substance: PANTOPRAZOLE
     Indication: PROPHYLAXIS
     Dosage: 40 MG, QD
     Route: 048
     Dates: start: 20170201
  37. DEXAMETHASONE. [Suspect]
     Active Substance: DEXAMETHASONE
     Indication: PROCEDURAL VOMITING
     Dosage: 2 MG, QD
     Route: 048
     Dates: start: 20170922
  38. DEXAMETHASONE. [Suspect]
     Active Substance: DEXAMETHASONE
     Dosage: 1.5 MG, QD
     Route: 048
     Dates: start: 20180724, end: 20180806
  39. COBIMETINIB. [Suspect]
     Active Substance: COBIMETINIB
     Dosage: 60 MG, QD
     Route: 048
     Dates: start: 20170904, end: 20180423
  40. COBIMETINIB. [Suspect]
     Active Substance: COBIMETINIB
     Dosage: 40 MG, QD
     Route: 048
     Dates: start: 20180423, end: 20180514
  41. COBIMETINIB. [Suspect]
     Active Substance: COBIMETINIB
     Dosage: 40 MG
     Route: 048
     Dates: start: 20171113, end: 20180423
  42. VOMEX A [Concomitant]
     Active Substance: DIMENHYDRINATE
     Indication: PAIN
     Dosage: IN CASE OF NAUSEA MAX. 3 TIMES PER DAY
     Route: 065
     Dates: start: 20180620
  43. ASPIRIN. [Concomitant]
     Active Substance: ASPIRIN
     Indication: VASCULAR GRAFT
  44. LEVETIRACETAM. [Concomitant]
     Active Substance: LEVETIRACETAM
     Indication: METASTASES TO CENTRAL NERVOUS SYSTEM
     Dosage: 1250 MG, Q12H
     Route: 048
  45. FOLVERLAN [Concomitant]
     Active Substance: FOLIC ACID
     Indication: PROPHYLAXIS
     Dosage: PROPHYLAXIS OF FOLATE SHORTAGE
     Route: 048
     Dates: start: 20181022, end: 20181203
  46. VIMPAT [Concomitant]
     Active Substance: LACOSAMIDE
     Indication: PROPHYLAXIS
     Route: 048
     Dates: start: 20190426
  47. DEXAMETHASONE. [Suspect]
     Active Substance: DEXAMETHASONE
     Indication: RETINOPATHY
     Dosage: 4 MG, QD
     Route: 048
     Dates: start: 20170904, end: 20170921
  48. DEXAMETHASONE. [Suspect]
     Active Substance: DEXAMETHASONE
     Dosage: 4 MG, QD
     Route: 048
     Dates: start: 20180607, end: 20180611
  49. DEXAMETHASONE. [Suspect]
     Active Substance: DEXAMETHASONE
     Dosage: 2 MG, QD
     Route: 048
     Dates: start: 20180710, end: 20180723
  50. COBIMETINIB. [Suspect]
     Active Substance: COBIMETINIB
     Indication: METASTATIC MALIGNANT MELANOMA
     Dosage: 40 MG, QD
     Route: 048
     Dates: start: 20170831, end: 20170903
  51. VEMURAFENIB. [Suspect]
     Active Substance: VEMURAFENIB
     Dosage: 960 MG, QD
     Route: 048
     Dates: start: 20170831, end: 20170903
  52. VEMURAFENIB. [Suspect]
     Active Substance: VEMURAFENIB
     Dosage: 1440 MG, QD
     Route: 048
     Dates: start: 20170904, end: 20170906
  53. VEMURAFENIB. [Suspect]
     Active Substance: VEMURAFENIB
     Dosage: 480 MG
     Route: 048
     Dates: start: 20170831, end: 20170903
  54. MONO EMBOLEX [Concomitant]
     Active Substance: CERTOPARIN SODIUM
     Indication: PROPHYLAXIS
  55. RAMIPRIL. [Concomitant]
     Active Substance: RAMIPRIL
     Indication: VASCULAR GRAFT
     Dosage: MOST RECENT DOSE 02/NOV/2017
     Route: 048
     Dates: start: 20140501
  56. LEVETIRACETAM. [Concomitant]
     Active Substance: LEVETIRACETAM
     Indication: MALIGNANT MELANOMA
  57. ACETYLSALICYLIC ACID [Concomitant]
     Active Substance: ASPIRIN
     Indication: VASCULAR GRAFT
     Dosage: 100 MG, QD
     Route: 048
     Dates: start: 20140501
  58. MOVICOL [Concomitant]
     Active Substance: POLYETHYLENE GLYCOL 3350\POTASSIUM CHLORIDE\SODIUM BICARBONATE\SODIUM CHLORIDE
     Indication: PROPHYLAXIS
     Dosage: 1381 MG, QD
     Route: 048
     Dates: start: 20190421

REACTIONS (35)
  - Dysgeusia [Recovered/Resolved]
  - Pulmonary embolism [Unknown]
  - Peripheral sensory neuropathy [Unknown]
  - Epidural lipomatosis [Not Recovered/Not Resolved]
  - Lymphoedema [Unknown]
  - Conjunctivitis [Not Recovered/Not Resolved]
  - Pyrexia [Recovered/Resolved]
  - Skin hypopigmentation [Not Recovered/Not Resolved]
  - Intervertebral disc protrusion [Not Recovered/Not Resolved]
  - Small intestinal haemorrhage [Recovered/Resolved]
  - Photosensitivity reaction [Recovered/Resolved]
  - Fatigue [Recovered/Resolved]
  - Skin mass [Unknown]
  - Metastases to central nervous system [Unknown]
  - Epilepsy [Unknown]
  - Vision blurred [Recovered/Resolved]
  - Retinopathy [Unknown]
  - Pain in extremity [Not Recovered/Not Resolved]
  - Peripheral nerve lesion [Unknown]
  - Brain oedema [Not Recovered/Not Resolved]
  - Muscular weakness [Unknown]
  - Mucosal dryness [Recovered/Resolved]
  - Hyperglycaemia [Recovered/Resolved]
  - Skin infection [Recovered/Resolved]
  - Cerebral ischaemia [Recovered/Resolved with Sequelae]
  - Hyperkeratosis [Unknown]
  - Peripheral motor neuropathy [Unknown]
  - Cough [Recovered/Resolved]
  - Spinal osteoarthritis [Not Recovered/Not Resolved]
  - Cataract [Not Recovered/Not Resolved]
  - Dermal cyst [Not Recovered/Not Resolved]
  - Fatigue [Unknown]
  - Monoparesis [Not Recovered/Not Resolved]
  - Retinopathy [Recovered/Resolved with Sequelae]
  - Subcutaneous abscess [Recovered/Resolved]

NARRATIVE: CASE EVENT DATE: 20170823
